FAERS Safety Report 16228038 (Version 1)
Quarter: 2019Q2

REPORT INFORMATION
  Report Type: Spontaneous
  Country: US (occurrence: US)
  Receive Date: 20190422
  Receipt Date: 20190422
  Transmission Date: 20190711
  Serious: Yes (Death)
  Sender: FDA-Public Use
  Company Number: None

PATIENT
  Sex: Male
  Weight: 63.5 kg

DRUGS (5)
  1. METOPROLOL SUCCINATE. [Concomitant]
     Active Substance: METOPROLOL SUCCINATE
  2. BICALUTAMIDE. [Concomitant]
     Active Substance: BICALUTAMIDE
  3. PREDNISONE. [Suspect]
     Active Substance: PREDNISONE
     Indication: PROSTATE CANCER
     Dosage: ?          OTHER FREQUENCY:BID WITH CHEMO;?
     Route: 048
     Dates: start: 20181030, end: 20190422
  4. DONEPEZIL. [Concomitant]
     Active Substance: DONEPEZIL
  5. DOCETAXEL. [Concomitant]
     Active Substance: DOCETAXEL
     Dates: start: 20181030, end: 20190418

REACTIONS (1)
  - Death [None]
